FAERS Safety Report 21139045 (Version 2)
Quarter: 2022Q3

REPORT INFORMATION
  Report Type: Spontaneous
  Country: GB (occurrence: GB)
  Receive Date: 20220727
  Receipt Date: 20220914
  Transmission Date: 20221027
  Serious: Yes (Other)
  Sender: FDA-Public Use
  Company Number: GB-TAKEDA-2022TUS049673

PATIENT
  Age: 20 Year
  Sex: Female
  Weight: 48.5 kg

DRUGS (1)
  1. LISDEXAMFETAMINE DIMESYLATE [Suspect]
     Active Substance: LISDEXAMFETAMINE DIMESYLATE
     Indication: Attention deficit hyperactivity disorder
     Dosage: 20 MILLIGRAM, QD
     Route: 065
     Dates: start: 202207

REACTIONS (4)
  - Syncope [Unknown]
  - Dizziness [Unknown]
  - Nausea [Unknown]
  - Abdominal discomfort [Unknown]
